FAERS Safety Report 6224360-4 (Version None)
Quarter: 2009Q2

REPORT INFORMATION
  Report Type: 
  Country: None (occurrence: None)
  Receive Date: 20090612
  Receipt Date: 20090312
  Transmission Date: 20091009
  Serious: No
  Sender: FDA-Public Use
  Company Number: US-ABBOTT-09P-163-0563148-00

PATIENT
  Sex: Female

DRUGS (11)
  1. HUMIRA [Suspect]
     Indication: PSORIASIS
     Dosage: 2 DOSES RECEIVED: 80MG LOADING DOSE AND 40MG DOSE
     Route: 058
     Dates: start: 20090216
  2. HYDROCHLOROTHIAZIDE [Concomitant]
     Indication: DRUG USE FOR UNKNOWN INDICATION
     Route: 048
  3. ZOCOR [Concomitant]
     Indication: DRUG USE FOR UNKNOWN INDICATION
  4. PROBENECID [Concomitant]
     Indication: DRUG USE FOR UNKNOWN INDICATION
  5. NAPROXEN [Concomitant]
     Indication: DRUG USE FOR UNKNOWN INDICATION
  6. PRILOSEC [Concomitant]
     Indication: DRUG USE FOR UNKNOWN INDICATION
  7. TYLENOL (CAPLET) [Concomitant]
     Indication: DRUG USE FOR UNKNOWN INDICATION
  8. ALPRAZOLAM [Concomitant]
     Indication: DRUG USE FOR UNKNOWN INDICATION
  9. METOPROLOL SUCCINATE [Concomitant]
     Indication: DRUG USE FOR UNKNOWN INDICATION
  10. LOTREL [Concomitant]
     Indication: DRUG USE FOR UNKNOWN INDICATION
  11. LIGHT TREATMENTS [Concomitant]
     Indication: PSORIASIS

REACTIONS (7)
  - ANTI-SS-A ANTIBODY POSITIVE [None]
  - ARTHRALGIA [None]
  - JOINT STIFFNESS [None]
  - OEDEMA PERIPHERAL [None]
  - RED BLOOD CELL SEDIMENTATION RATE INCREASED [None]
  - RHEUMATOID FACTOR INCREASED [None]
  - WEIGHT INCREASED [None]
